FAERS Safety Report 14376408 (Version 1)
Quarter: 2018Q1

REPORT INFORMATION
  Report Type: Spontaneous
  Country: US (occurrence: US)
  Receive Date: 20180110
  Receipt Date: 20180110
  Transmission Date: 20180509
  Serious: No
  Sender: FDA-Public Use
  Company Number: None

PATIENT
  Sex: Female
  Weight: 75.75 kg

DRUGS (2)
  1. RASUVO [Suspect]
     Active Substance: METHOTREXATE SODIUM
     Indication: RHEUMATOID ARTHRITIS
     Route: 058
     Dates: start: 201710
  2. RASUVO [Suspect]
     Active Substance: METHOTREXATE SODIUM
     Indication: FELTY^S SYNDROME
     Route: 058
     Dates: start: 201710

REACTIONS (2)
  - Malaise [None]
  - Drug dose omission [None]
